FAERS Safety Report 8123451-0 (Version None)
Quarter: 2012Q1

REPORT INFORMATION
  Report Type: 
  Country: None (occurrence: None)
  Receive Date: 20120208
  Receipt Date: 20120130
  Transmission Date: 20120608
  Serious: Yes (Other)
  Sender: FDA-Public Use
  Company Number: PHHY2012BR008196

PATIENT
  Sex: Female

DRUGS (1)
  1. EXFORGE HCT [Suspect]

REACTIONS (4)
  - RENAL DISORDER [None]
  - CARDIAC DISORDER [None]
  - PAIN [None]
  - SWELLING [None]
